FAERS Safety Report 5284403-1 (Version None)
Quarter: 2007Q1

REPORT INFORMATION
  Report Type: 
  Country: None (occurrence: None)
  Receive Date: 20070330
  Receipt Date: 20070330
  Transmission Date: 20070707
  Serious: Yes (Life-Threatening, Hospitalization)
  Sender: FDA-Public Use
  Company Number: None

PATIENT
  Age: 59 Year
  Sex: Male

DRUGS (2)
  1. RETROVIR [Suspect]
     Indication: ACQUIRED IMMUNODEFICIENCY SYNDROME
     Dosage: 300 MG EVERY 12 HOURS ORAL
     Route: 048
     Dates: start: 20061121, end: 20070131
  2. RETROVIR [Suspect]
     Indication: HIV INFECTION
     Dosage: 300 MG EVERY 12 HOURS ORAL
     Route: 048
     Dates: start: 20061121, end: 20070131

REACTIONS (2)
  - BONE MARROW FAILURE [None]
  - INCORRECT DOSE ADMINISTERED [None]
